FAERS Safety Report 7110236-7 (Version None)
Quarter: 2010Q4

REPORT INFORMATION
  Report Type: 
  Country: None (occurrence: None)
  Receive Date: 20101117
  Receipt Date: 20101117
  Transmission Date: 20110411
  Serious: Yes (Hospitalization)
  Sender: FDA-Public Use
  Company Number: None

PATIENT
  Age: 63 Year
  Sex: Female
  Weight: 58.9676 kg

DRUGS (3)
  1. AVELOX [Suspect]
     Indication: POSTOPERATIVE CARE
     Dosage: 400 MG 1 PER DAY FOR 5 DAYS
     Dates: start: 20100914, end: 20100918
  2. AVELOX [Suspect]
     Indication: PROPHYLAXIS
     Dosage: 400 MG 1 PER DAY FOR 5 DAYS
     Dates: start: 20100914, end: 20100918
  3. . [Concomitant]

REACTIONS (15)
  - ABASIA [None]
  - ARTHRALGIA [None]
  - BACK PAIN [None]
  - CHROMATURIA [None]
  - DYSPNOEA [None]
  - GLOSSODYNIA [None]
  - HEADACHE [None]
  - INSOMNIA [None]
  - JOINT SWELLING [None]
  - NAUSEA [None]
  - OEDEMA MOUTH [None]
  - OEDEMA PERIPHERAL [None]
  - PAIN IN EXTREMITY [None]
  - RASH [None]
  - VAGINAL HAEMORRHAGE [None]
